FAERS Safety Report 6094330-8 (Version None)
Quarter: 2009Q1

REPORT INFORMATION
  Report Type: 
  Country: None (occurrence: None)
  Receive Date: 20090226
  Receipt Date: 20090220
  Transmission Date: 20090719
  Serious: Yes (Other)
  Sender: FDA-Public Use
  Company Number: US-JNJCH-2009004933

PATIENT
  Age: 64 Year
  Sex: Female
  Weight: 61.2 kg

DRUGS (4)
  1. BENGAY PAIN RELIEVING PATCH [Suspect]
     Indication: MUSCLE STRAIN
     Dosage: TEXT:ONE PATCH SHOULDER AND TWO ON BACK 1 1/2 HOUR
     Route: 061
     Dates: start: 20090214, end: 20090215
  2. NEOSPORIN [Suspect]
     Indication: ERYTHEMA
     Dosage: TEXT:UNSPECIFIED
     Route: 061
  3. ANTIINFLAMMATORY/ANTIRHEUMATIC PRODUCTS [Suspect]
     Indication: DRUG USE FOR UNKNOWN INDICATION
     Dosage: TEXT:UNSPECIFIED
     Route: 048
  4. NAPRELAN [Concomitant]
     Indication: DRUG USE FOR UNKNOWN INDICATION
     Dosage: TEXT:500 MG ONCE DAILY
     Route: 065

REACTIONS (5)
  - APPLICATION SITE ERYTHEMA [None]
  - BLISTER [None]
  - BURNS SECOND DEGREE [None]
  - PAIN [None]
  - SKIN DISCOLOURATION [None]
